FAERS Safety Report 5156672-X (Version None)
Quarter: 2006Q4

REPORT INFORMATION
  Report Type: 
  Country: None (occurrence: None)
  Receive Date: 20061115
  Receipt Date: 20061102
  Transmission Date: 20070319
  Serious: Yes (Other)
  Sender: FDA-Public Use
  Company Number: 2006134931

PATIENT
  Sex: Male

DRUGS (2)
  1. ZYVOX [Suspect]
     Indication: ABSCESS BACTERIAL
     Dosage: 1200 MG (600 MG, 2 IN 1 D)
     Dates: start: 20060420, end: 20061102
  2. BIAXIN [Suspect]
     Indication: ABSCESS BACTERIAL
     Dosage: 1200 MG (600 MG, 2 IN 1 D)
     Dates: start: 20060101, end: 20061102

REACTIONS (6)
  - BLINDNESS [None]
  - CATARACT OPERATION [None]
  - EXTRAOCULAR MUSCLE DISORDER [None]
  - HYPOAESTHESIA [None]
  - MYOPATHY [None]
  - WEIGHT DECREASED [None]
